FAERS Safety Report 20102199 (Version 1)
Quarter: 2021Q4

REPORT INFORMATION
  Report Type: Spontaneous
  Country: ZA (occurrence: ZA)
  Receive Date: 20211123
  Receipt Date: 20211123
  Transmission Date: 20220303
  Serious: Yes (Hospitalization, Other)
  Sender: FDA-Public Use
  Company Number: ZA-PFIZER INC-202101562170

PATIENT
  Sex: Female
  Weight: 55 kg

DRUGS (11)
  1. LORLATINIB [Suspect]
     Active Substance: LORLATINIB
     Indication: Lung adenocarcinoma
     Dosage: 100 MG, DAILY
     Route: 048
     Dates: start: 20210803, end: 20211105
  2. CRESTOR [Concomitant]
     Active Substance: ROSUVASTATIN CALCIUM
     Indication: Dyslipidaemia
     Dosage: 5 MG, DAILY (NOCTE - AT NIGHT)
     Route: 048
     Dates: start: 20210803
  3. BEZALIP SR [Concomitant]
     Indication: Dyslipidaemia
     Dosage: 400 MG, DAILY
     Route: 048
     Dates: start: 20210816
  4. LAMOTRIGINE [Concomitant]
     Active Substance: LAMOTRIGINE
     Indication: Epilepsy
     Dosage: 50 MG, 2X/DAY
  5. EUTHYROX [Concomitant]
     Active Substance: LEVOTHYROXINE SODIUM
     Indication: Hypothyroidism
     Dosage: 50 UG, DAILY
  6. VENLAFAXINE SR [Concomitant]
     Indication: Depression
     Dosage: 75 MG, DAILY
  7. CELECOXIB [Concomitant]
     Active Substance: CELECOXIB
     Indication: Pain
     Dosage: 100 MG, DAILY
  8. CLOBAZAM [Concomitant]
     Active Substance: CLOBAZAM
     Indication: Insomnia
     Dosage: 5 MG NOCTE - AT NIGHT
  9. NEXIUM I.V. [Concomitant]
     Active Substance: ESOMEPRAZOLE SODIUM
     Indication: Gastritis
     Dosage: 40 MG, DAILY
  10. OXYCODONE HYDROCHLORIDE [Concomitant]
     Active Substance: OXYCODONE HYDROCHLORIDE
     Indication: Analgesic therapy
     Dosage: 5 MG, 2X/DAY
  11. ACETAMINOPHEN\CAFFEINE\CODEINE PHOSPHATE\MEPROBAMATE [Concomitant]
     Active Substance: ACETAMINOPHEN\CAFFEINE\CODEINE PHOSPHATE\MEPROBAMATE
     Indication: Analgesic therapy
     Dosage: PRN - AS NEEDED

REACTIONS (8)
  - Paraesthesia [Recovered/Resolved]
  - Nausea [Recovered/Resolved]
  - Dizziness [Recovered/Resolved]
  - Radiculopathy [Unknown]
  - Intervertebral disc degeneration [Unknown]
  - Neuropathy peripheral [Unknown]
  - Carpal tunnel syndrome [Unknown]
  - Neoplasm progression [Unknown]

NARRATIVE: CASE EVENT DATE: 20211028
